FAERS Safety Report 19289238 (Version 1)
Quarter: 2021Q2

REPORT INFORMATION
  Report Type: Report from Study
  Country: EG (occurrence: EG)
  Receive Date: 20210521
  Receipt Date: 20210521
  Transmission Date: 20210717
  Serious: Yes (Hospitalization, Other)
  Sender: FDA-Public Use
  Company Number: NVSC2021EG108553

PATIENT
  Age: 60 Year
  Sex: Male

DRUGS (6)
  1. ENTRESTO [Suspect]
     Active Substance: SACUBITRIL\VALSARTAN
     Dosage: 0.25 DF, BID (CONC: 100 MG)
     Route: 048
     Dates: end: 20200915
  2. ENTRESTO [Suspect]
     Active Substance: SACUBITRIL\VALSARTAN
     Dosage: 0.25 DF, BID (CONC: 100 MG)
     Route: 048
     Dates: start: 20200515, end: 20200715
  3. INSULIN [Concomitant]
     Active Substance: INSULIN NOS
     Indication: PRODUCT USED FOR UNKNOWN INDICATION
     Dosage: 60 IU, QD (20UNIT ONCE DAILY AND 40 UNITS ONCE DAILY)
     Route: 065
  4. ENTRESTO [Suspect]
     Active Substance: SACUBITRIL\VALSARTAN
     Dosage: 1 DF, BID (CONC: 50 MG)
     Route: 048
     Dates: start: 20200715, end: 20200725
  5. ENTRESTO [Suspect]
     Active Substance: SACUBITRIL\VALSARTAN
     Dosage: 0.5 DF, BID (CONC: 100 MG)
     Route: 048
     Dates: start: 20200315, end: 20200515
  6. ENTRESTO [Suspect]
     Active Substance: SACUBITRIL\VALSARTAN
     Indication: CARDIAC FAILURE
     Dosage: 1 DF, BID (CONC: 100 MG)
     Route: 048
     Dates: start: 20200301, end: 20200315

REACTIONS (5)
  - Asthenia [Recovered/Resolved]
  - Sexual dysfunction [Recovering/Resolving]
  - Hyperhidrosis [Recovered/Resolved]
  - Angina pectoris [Recovering/Resolving]
  - Hypotension [Recovered/Resolved]

NARRATIVE: CASE EVENT DATE: 202003
